FAERS Safety Report 16841304 (Version 1)
Quarter: 2019Q3

REPORT INFORMATION
  Report Type: Spontaneous
  Country: US (occurrence: US)
  Receive Date: 20190801
  Receipt Date: 20190801
  Transmission Date: 20191005
  Serious: No
  Sender: FDA-Public Use
  Company Number: None

PATIENT
  Age: 69 Year
  Sex: Female

DRUGS (1)
  1. GLATOPA [Suspect]
     Active Substance: GLATIRAMER ACETATE
     Dosage: ?          OTHER FREQUENCY:OTHER;?
     Route: 058
     Dates: start: 201907

REACTIONS (6)
  - Chills [None]
  - Injection site erythema [None]
  - Headache [None]
  - Pyrexia [None]
  - Influenza like illness [None]
  - Injection site reaction [None]

NARRATIVE: CASE EVENT DATE: 20190717
